FAERS Safety Report 6541700-7 (Version None)
Quarter: 2010Q1

REPORT INFORMATION
  Report Type: 
  Country: None (occurrence: None)
  Receive Date: 20100119
  Receipt Date: 20100108
  Transmission Date: 20100710
  Serious: Yes (Hospitalization)
  Sender: FDA-Public Use
  Company Number: FR-AMGEN-US381861

PATIENT
  Sex: Female

DRUGS (5)
  1. ENBREL [Suspect]
     Indication: RHEUMATOID ARTHRITIS
     Route: 058
     Dates: start: 20090801
  2. NEXIUM [Concomitant]
     Dosage: UNKNOWN
  3. IXPRIM [Concomitant]
     Dosage: UNKNOWN
  4. ARAVA [Concomitant]
     Dosage: UNKNOWN
  5. MOBIC [Concomitant]
     Dosage: UNKNOWN

REACTIONS (8)
  - ARTHROPATHY [None]
  - ASTHENIA [None]
  - CHEST DISCOMFORT [None]
  - DYSPNOEA [None]
  - GENERAL PHYSICAL HEALTH DETERIORATION [None]
  - INJECTION SITE REACTION [None]
  - IRRITABILITY [None]
  - VERTIGO [None]
